FAERS Safety Report 4505243-4 (Version None)
Quarter: 2004Q4

REPORT INFORMATION
  Report Type: 
  Country: None (occurrence: None)
  Receive Date: 20041119
  Receipt Date: 20041108
  Transmission Date: 20050328
  Serious: Yes (Death)
  Sender: FDA-Public Use
  Company Number: US-JNJFOC-20040708270

PATIENT
  Age: 65 Year
  Sex: Female

DRUGS (23)
  1. DURAGESIC [Suspect]
     Route: 062
     Dates: start: 20040107, end: 20040117
  2. DURAGESIC [Suspect]
     Indication: CANCER PAIN
     Route: 062
     Dates: start: 20040107, end: 20040117
  3. HYDROCODONE [Concomitant]
     Indication: PAIN
     Dosage: 5 MG HYDROCODONE PLUS 500 MG ACETAMINOPHEN
     Route: 049
     Dates: start: 20030910
  4. DECADRON [Concomitant]
     Indication: MENTAL STATUS CHANGES
     Dates: start: 20040112
  5. DILAUDID [Concomitant]
     Dosage: AS NEEDED
     Dates: start: 20040112
  6. XANAX [Concomitant]
     Route: 049
     Dates: start: 20040110
  7. NORTRIPTYLINE HCL [Concomitant]
     Route: 049
     Dates: start: 20030104
  8. DIAZEPAM [Concomitant]
     Route: 049
     Dates: start: 20031201
  9. OXYCODONE HCL [Concomitant]
     Dosage: 5 MG OXYCODONE PLUS 325 MG ACETAMINOPHEN
     Route: 049
     Dates: start: 20031009
  10. COMBIVENT [Concomitant]
     Route: 055
  11. COMBIVENT [Concomitant]
     Route: 055
  12. PULMICORT [Concomitant]
  13. ESCITALOPRAM OXALATE [Concomitant]
  14. PROCHLORPERAZINE [Concomitant]
     Route: 049
     Dates: start: 20030905
  15. LORAZEPAM [Concomitant]
     Route: 049
     Dates: start: 20030104
  16. PROPOXYPHENE NAPSYLATE [Concomitant]
     Dosage: 100 MG PROPOXYPHENE NAPSYLATE PLUS 650 MG ACETAMINOPHEN
     Route: 049
     Dates: start: 20030810
  17. NASONEX [Concomitant]
  18. CEPHALEXIN [Concomitant]
     Route: 049
     Dates: start: 20030830
  19. TAXOL [Concomitant]
     Dates: start: 20040107
  20. NAVELBINE [Concomitant]
     Dates: start: 20040107
  21. THEOPHYLLINE [Concomitant]
     Route: 049
     Dates: start: 20031017
  22. PREDNISONE [Concomitant]
     Route: 049
     Dates: start: 20031217
  23. HYDROMORPHONE HYDROCHLORIDE [Concomitant]

REACTIONS (19)
  - AGITATION [None]
  - ANXIETY [None]
  - ASTHENIA [None]
  - CARDIO-RESPIRATORY ARREST [None]
  - CHEST PAIN [None]
  - COMA [None]
  - CONFUSIONAL STATE [None]
  - HYPOVENTILATION [None]
  - LETHARGY [None]
  - MALIGNANT NEOPLASM PROGRESSION [None]
  - MENTAL STATUS CHANGES [None]
  - NEUTROPENIA [None]
  - PAIN EXACERBATED [None]
  - PYREXIA [None]
  - RESPIRATORY ACIDOSIS [None]
  - RESPIRATORY FAILURE [None]
  - SINUS TACHYCARDIA [None]
  - SOMNOLENCE [None]
  - URINARY INCONTINENCE [None]
